FAERS Safety Report 21255289 (Version 2)
Quarter: 2022Q3

REPORT INFORMATION
  Report Type: Spontaneous
  Country: FR (occurrence: FR)
  Receive Date: 20220825
  Receipt Date: 20220913
  Transmission Date: 20221027
  Serious: Yes (Death, Other)
  Sender: FDA-Public Use
  Company Number: FR-BRISTOL-MYERS SQUIBB COMPANY-2022-060165

PATIENT
  Age: 57 Year
  Sex: Male
  Weight: 81 kg

DRUGS (1)
  1. ONUREG [Suspect]
     Active Substance: AZACITIDINE
     Indication: Acute myeloid leukaemia
     Dosage: DOSE : 300MG;     FREQ : DAILY FOR THE FIRST 14 DAYS (28-DAY CYCLE)?NUMBER OF CYCLES: 3
     Route: 048

REACTIONS (5)
  - Febrile neutropenia [Fatal]
  - Blood test abnormal [Unknown]
  - Haemoglobin abnormal [Unknown]
  - White blood cell count abnormal [Unknown]
  - Platelet disorder [Unknown]

NARRATIVE: CASE EVENT DATE: 20220613
